FAERS Safety Report 20326856 (Version 1)
Quarter: 2022Q1

REPORT INFORMATION
  Report Type: Spontaneous
  Country: US (occurrence: US)
  Receive Date: 20220112
  Receipt Date: 20220112
  Transmission Date: 20220424
  Serious: Yes (Other)
  Sender: FDA-Public Use
  Company Number: US-Accord-249741

PATIENT
  Sex: Female

DRUGS (1)
  1. SPIRONOLACTONE [Suspect]
     Active Substance: SPIRONOLACTONE
     Indication: Product used for unknown indication
     Dosage: STRENGTH: 25MG

REACTIONS (8)
  - Blood oestrogen decreased [Unknown]
  - Adrenal androgen excess [Unknown]
  - Breast pain [Unknown]
  - Vaginal discharge [Unknown]
  - Illness [Unknown]
  - Product quality issue [Unknown]
  - Asthenia [Unknown]
  - Product substitution issue [Unknown]
